FAERS Safety Report 7497854-1 (Version None)
Quarter: 2011Q2

REPORT INFORMATION
  Report Type: 
  Country: None (occurrence: None)
  Receive Date: 20110524
  Receipt Date: 20110428
  Transmission Date: 20111010
  Serious: Yes (Hospitalization)
  Sender: FDA-Public Use
  Company Number: US-BAYER-2011-011365

PATIENT
  Age: 31 Year
  Sex: Female
  Weight: 47.619 kg

DRUGS (6)
  1. MORPHINE [Concomitant]
     Indication: PAIN
     Dosage: UNK
     Dates: start: 20090604
  2. PRILOSEC [Concomitant]
     Dosage: UNK
     Dates: start: 20090604
  3. PERCOCET [Concomitant]
     Indication: PAIN
     Dosage: UNK
     Dates: start: 20090604
  4. DROSPIRENONE AND ETHINYL ESTRADIOL [Suspect]
     Indication: CONTRACEPTION
     Dosage: UNK
     Dates: start: 20030101, end: 20100101
  5. YASMIN [Suspect]
     Indication: CONTRACEPTION
     Dosage: UNK
     Dates: start: 20030101, end: 20100101
  6. OMEPRAZOLE [Concomitant]
     Dosage: 20 MG, BID
     Dates: start: 20090518

REACTIONS (4)
  - PAIN [None]
  - GALLBLADDER DISORDER [None]
  - CHOLECYSTITIS CHRONIC [None]
  - INJURY [None]
